FAERS Safety Report 6556990-4 (Version None)
Quarter: 2010Q1

REPORT INFORMATION
  Report Type: 
  Country: None (occurrence: None)
  Receive Date: 20100126
  Receipt Date: 20100113
  Transmission Date: 20100710
  Serious: Yes (Hospitalization, Disabling, Other)
  Sender: FDA-Public Use
  Company Number: 2009AC000189

PATIENT
  Age: 82 Year
  Sex: Female

DRUGS (55)
  1. DIGOXIN [Suspect]
     Dosage: PO
     Route: 048
  2. DIGOXIN [Suspect]
     Dosage: 0.25 MG; QD; PO
     Route: 048
     Dates: start: 19980301, end: 20080228
  3. 1- CHLORO- 2 , 4 - [Concomitant]
  4. DINITROBENZENE [Concomitant]
  5. COUMADIN [Concomitant]
  6. CYMBALTA [Concomitant]
  7. FAMOTIDINE [Concomitant]
  8. ISOSORBIDE MONONITRATE [Concomitant]
  9. LASIX [Concomitant]
  10. LISINOPRIL [Concomitant]
  11. ENDOCERT [Concomitant]
  12. REQUIP [Concomitant]
  13. ALDACTONE [Concomitant]
  14. VICODIN [Concomitant]
  15. VYTORIN [Concomitant]
  16. CHOLESTYRAMINE LIGHT [Concomitant]
  17. CRESTOR [Concomitant]
  18. K-DUR [Concomitant]
  19. POTASSIUM [Concomitant]
  20. LIPITOR [Concomitant]
  21. SPIRONOLACTONE [Concomitant]
  22. TRAMADOL [Concomitant]
  23. WARFARIN SODIUM [Concomitant]
  24. ZETIA [Concomitant]
  25. ADVIL [Concomitant]
  26. ASPIRIN ASPIRIN-FREE EXCEDRIN [Concomitant]
  27. BIO-MEGA3 [Concomitant]
  28. CRANBERRY EXTRACT [Concomitant]
  29. FERRAMIN [Concomitant]
  30. HEPASIL DTX [Concomitant]
  31. SUDAFED TUMS WITH CALCIUM [Concomitant]
  32. VITAMIN D [Concomitant]
  33. METOPROLOL TARTRATE [Concomitant]
  34. GLIMEPIRIDE [Concomitant]
  35. IRON [Concomitant]
  36. IMDUR [Concomitant]
  37. LEVAQUIN [Concomitant]
  38. VITAMIN C [Concomitant]
  39. PERCOCET [Concomitant]
  40. CEPHALEXIN [Concomitant]
  41. XENADERM [Concomitant]
  42. ROPINIROLE HYDROCHLORIDE [Concomitant]
  43. SULFAMETHOXAZOLE [Concomitant]
  44. MUPIROCIN [Concomitant]
  45. OXYCODONE [Concomitant]
  46. POTASSIUM CHLORIDE [Concomitant]
  47. METOLAZONE [Concomitant]
  48. HYDROCODONE [Concomitant]
  49. KLOR-CON [Concomitant]
  50. IBUPROFEN [Concomitant]
  51. METOPROLOL TARTRATE [Concomitant]
  52. ALDACTONE [Concomitant]
  53. VYTORIN [Concomitant]
  54. ZOSYN [Concomitant]
  55. LEVOFLOXACIN [Concomitant]

REACTIONS (41)
  - ANHEDONIA [None]
  - ANXIETY [None]
  - ARTHRALGIA [None]
  - ATRIOVENTRICULAR BLOCK [None]
  - BACK PAIN [None]
  - BLOOD PRESSURE INADEQUATELY CONTROLLED [None]
  - BRADYCARDIA [None]
  - CARDIAC VALVE DISEASE [None]
  - CONFUSIONAL STATE [None]
  - CONVULSION [None]
  - CORONARY ARTERY DISEASE [None]
  - DECUBITUS ULCER [None]
  - DEPRESSION [None]
  - DIABETES MELLITUS [None]
  - DIARRHOEA [None]
  - DYSLIPIDAEMIA [None]
  - ECONOMIC PROBLEM [None]
  - HEART RATE IRREGULAR [None]
  - HEPATIC ENZYME INCREASED [None]
  - HIATUS HERNIA [None]
  - HYPERTENSION [None]
  - HYPOTENSION [None]
  - HYPOVOLAEMIA [None]
  - INJURY [None]
  - JOINT SWELLING [None]
  - LETHARGY [None]
  - MUSCULAR WEAKNESS [None]
  - MUSCULOSKELETAL STIFFNESS [None]
  - MYALGIA [None]
  - NECK PAIN [None]
  - PALPITATIONS [None]
  - PROCTALGIA [None]
  - PULMONARY ARTERIAL HYPERTENSION [None]
  - RENAL FAILURE ACUTE [None]
  - SEPSIS [None]
  - SHOCK [None]
  - THERAPEUTIC AGENT TOXICITY [None]
  - TREATMENT NONCOMPLIANCE [None]
  - UNEVALUABLE EVENT [None]
  - URINARY TRACT INFECTION [None]
  - VISUAL IMPAIRMENT [None]
